FAERS Safety Report 7928538-0 (Version None)
Quarter: 2011Q4

REPORT INFORMATION
  Report Type: 
  Country: None (occurrence: None)
  Receive Date: 20111118
  Receipt Date: 20111107
  Transmission Date: 20120403
  Serious: Yes (Hospitalization)
  Sender: FDA-Public Use
  Company Number: US-BRISTOL-MYERS SQUIBB COMPANY-16239014

PATIENT
  Age: 37 Year
  Sex: Female

DRUGS (5)
  1. AMLODIPINE [Suspect]
  2. TRAMADOL HCL [Suspect]
  3. WARFARIN SODIUM [Suspect]
  4. LOXAPINE [Suspect]
  5. CARBAMAZEPINE [Suspect]

REACTIONS (2)
  - EXTREMITY NECROSIS [None]
  - CARDIOGENIC SHOCK [None]
